FAERS Safety Report 13584225 (Version 7)
Quarter: 2017Q3

REPORT INFORMATION
  Report Type: Spontaneous
  Country: US (occurrence: US)
  Receive Date: 20170526
  Receipt Date: 20170929
  Transmission Date: 20171127
  Serious: Yes (Death, Hospitalization, Other)
  Sender: FDA-Public Use
  Company Number: US-PFIZER INC-2017227463

PATIENT
  Age: 38 Year
  Sex: Male
  Weight: 122.45 kg

DRUGS (10)
  1. BASAGLAR [Concomitant]
     Active Substance: INSULIN GLARGINE
     Dosage: UNK
  2. VITAMIN D [Concomitant]
     Active Substance: CHOLECALCIFEROL
     Dosage: UNK
  3. SUTENT [Suspect]
     Active Substance: SUNITINIB MALATE
     Dosage: 50 MG, DAILY
     Dates: start: 20170503, end: 2017
  4. SUTENT [Suspect]
     Active Substance: SUNITINIB MALATE
     Dosage: 50 MG, CYCLIC (DAILY FOR 28 DAYS ON/14 DAYS OFF)
     Dates: start: 20170615
  5. SUTENT [Suspect]
     Active Substance: SUNITINIB MALATE
     Indication: RENAL CANCER METASTATIC
     Dosage: 37.5 MG, CYCLIC (EVERY DAY FOR 4 WEEKS EVERY 6 WEEKS)
     Route: 048
     Dates: start: 201705, end: 201705
  6. LEVETIRACETAM. [Concomitant]
     Active Substance: LEVETIRACETAM
     Dosage: UNK
  7. DEXAMETHASONE. [Concomitant]
     Active Substance: DEXAMETHASONE
     Dosage: UNK
  8. HYDROCHLOROTHIAZIDE. [Concomitant]
     Active Substance: HYDROCHLOROTHIAZIDE
     Dosage: UNK
  9. SUTENT [Suspect]
     Active Substance: SUNITINIB MALATE
     Dosage: 50 MG, CYCLIC, (TAKE 1 CAPSULE EVERY DAY FOR 4 WEEKS EVERY 6 WEEKS)
     Route: 048
     Dates: start: 201705
  10. HUMALOG [Concomitant]
     Active Substance: INSULIN LISPRO
     Dosage: UNK

REACTIONS (18)
  - Head discomfort [Unknown]
  - Muscular weakness [Unknown]
  - Joint swelling [Unknown]
  - Noninfective encephalitis [Not Recovered/Not Resolved]
  - Vertigo [Unknown]
  - Balance disorder [Unknown]
  - Diabetes mellitus [Recovering/Resolving]
  - Ageusia [Recovering/Resolving]
  - Emotional disorder [Unknown]
  - Peripheral swelling [Unknown]
  - Dizziness [Recovered/Resolved]
  - Weight fluctuation [Unknown]
  - Diarrhoea [Recovered/Resolved]
  - Blood glucose abnormal [Recovering/Resolving]
  - Sensory loss [Unknown]
  - Pain in extremity [Unknown]
  - Death [Fatal]
  - Seizure [Recovering/Resolving]

NARRATIVE: CASE EVENT DATE: 2017
